FAERS Safety Report 14663005 (Version 1)
Quarter: 2020Q3

REPORT INFORMATION
  Report Type: Spontaneous
  Country: BR (occurrence: BR)
  Receive Date: 20180321
  Receipt Date: 20180321
  Transmission Date: 20201104
  Serious: Yes (Hospitalization, Other)
  Sender: FDA-Public Use
  Company Number: BR-ROCHE-2088439

PATIENT
  Age: 53 Year
  Sex: Male

DRUGS (10)
  1. LORLATINIB [Concomitant]
     Active Substance: LORLATINIB
     Route: 065
     Dates: start: 20180119
  2. LORLATINIB [Concomitant]
     Active Substance: LORLATINIB
     Route: 065
     Dates: start: 20180228
  3. PACLITAXEL. [Concomitant]
     Active Substance: PACLITAXEL
     Indication: LUNG ADENOCARCINOMA
  4. CARBOPLATIN. [Concomitant]
     Active Substance: CARBOPLATIN
     Indication: LUNG ADENOCARCINOMA
  5. PEMETREXED. [Concomitant]
     Active Substance: PEMETREXED
  6. CERITINIB [Concomitant]
     Active Substance: CERITINIB
     Route: 065
     Dates: start: 2016
  7. RITUXIMAB. [Concomitant]
     Active Substance: RITUXIMAB
     Route: 065
  8. ALECTINIB. [Suspect]
     Active Substance: ALECTINIB
     Indication: LUNG ADENOCARCINOMA
     Route: 065
     Dates: start: 2016
  9. AVASTIN [Suspect]
     Active Substance: BEVACIZUMAB
     Indication: LUNG ADENOCARCINOMA
     Route: 065
  10. CRIZOTINIB [Concomitant]
     Active Substance: CRIZOTINIB

REACTIONS (5)
  - Oedema peripheral [Unknown]
  - Bradycardia [Unknown]
  - Pericarditis [Unknown]
  - Pulmonary congestion [Unknown]
  - Toxicity to various agents [Unknown]
